FAERS Safety Report 26064281 (Version 1)
Quarter: 2025Q4

REPORT INFORMATION
  Report Type: Spontaneous
  Country: US (occurrence: US)
  Receive Date: 20251119
  Receipt Date: 20251119
  Transmission Date: 20260118
  Serious: Yes (Death, Other)
  Sender: SAMSUNG BIOEPIS
  Company Number: US-SAMSUNG BIOEPIS-SB-2025-38033

PATIENT
  Age: 43 Year
  Sex: Male

DRUGS (4)
  1. INFLIXIMAB [Suspect]
     Active Substance: INFLIXIMAB
     Indication: Pneumonitis
  2. INFLIXIMAB [Suspect]
     Active Substance: INFLIXIMAB
     Indication: Acute respiratory distress syndrome
  3. PREDNISONE [Concomitant]
     Active Substance: PREDNISONE
     Indication: Pneumonitis
  4. PREDNISONE [Concomitant]
     Active Substance: PREDNISONE
     Indication: Acute respiratory distress syndrome

REACTIONS (7)
  - Septic shock [Fatal]
  - Acute respiratory failure [Unknown]
  - Respiratory failure [Unknown]
  - Fungal sepsis [Unknown]
  - Pneumonia bacterial [Unknown]
  - Pneumonia fungal [Unknown]
  - Off label use [Unknown]
